FAERS Safety Report 6640230-1 (Version None)
Quarter: 2010Q1

REPORT INFORMATION
  Report Type: 
  Country: None (occurrence: None)
  Receive Date: 20100318
  Receipt Date: 20100309
  Transmission Date: 20100710
  Serious: Yes (Other)
  Sender: FDA-Public Use
  Company Number: BR-ROCHE-689935

PATIENT
  Sex: Female

DRUGS (2)
  1. RIVOTRIL [Suspect]
     Indication: DRUG USE FOR UNKNOWN INDICATION
     Route: 065
  2. CONTRACEPTIVE DRUG NOS [Interacting]
     Route: 065

REACTIONS (4)
  - CENTRAL NERVOUS SYSTEM LESION [None]
  - CONVULSION [None]
  - DRUG INTERACTION [None]
  - HYPOAESTHESIA [None]
